FAERS Safety Report 6434744-7 (Version None)
Quarter: 2009Q4

REPORT INFORMATION
  Report Type: 
  Country: None (occurrence: None)
  Receive Date: 20091110
  Receipt Date: 20091030
  Transmission Date: 20100525
  Serious: Yes (Hospitalization, Other)
  Sender: FDA-Public Use
  Company Number: DE-JNJFOC-20091004936

PATIENT
  Age: 8 Year
  Sex: Male
  Weight: 30 kg

DRUGS (5)
  1. REMICADE [Suspect]
     Route: 042
     Dates: start: 20080401
  2. REMICADE [Suspect]
     Indication: CROHN'S DISEASE
     Route: 042
     Dates: start: 20080401
  3. SALOFALK [Concomitant]
     Indication: CROHN'S DISEASE
  4. ANTRA [Concomitant]
     Indication: CROHN'S DISEASE
  5. SINGULAIR [Concomitant]
     Indication: HYPERSENSITIVITY

REACTIONS (1)
  - SEPSIS [None]
